FAERS Safety Report 7729054-1 (Version None)
Quarter: 2011Q3

REPORT INFORMATION
  Report Type: 
  Country: None (occurrence: None)
  Receive Date: 20110906
  Receipt Date: 20110826
  Transmission Date: 20111222
  Serious: Yes (Hospitalization, Disabling, Other)
  Sender: FDA-Public Use
  Company Number: US-BAYER-2011-019125

PATIENT
  Age: 58 Year
  Sex: Female

DRUGS (16)
  1. CORTICOSTEROIDS [Concomitant]
     Indication: PRODUCT USED FOR UNKNOWN INDICATION
     Dosage: UNK
     Dates: start: 20110214, end: 20110218
  2. ADVIL LIQUI-GELS [Concomitant]
     Indication: PRODUCT USED FOR UNKNOWN INDICATION
     Dosage: 400 MG QOD
  3. OMEPRAZOLE [Concomitant]
  4. PROTONIX [Concomitant]
  5. NAPROXEN (ALEVE) [Concomitant]
  6. ATROVENT [Concomitant]
  7. BETASERON [Suspect]
     Dosage: 6 MIU, QOD
     Route: 058
     Dates: start: 20110221
  8. BETASERON [Suspect]
     Dosage: 8 MIU, QOD
     Route: 058
  9. ZOCOR [Concomitant]
  10. IV STEROIDS [Concomitant]
     Indication: MULTIPLE SCLEROSIS
     Dosage: UNK
     Dates: start: 20110523, end: 20110527
  11. OXYCODONE HCL [Concomitant]
     Indication: CONSTIPATION
     Dosage: PRN
  12. MORPHINE [Concomitant]
     Indication: CONSTIPATION
  13. ACETAMINOPHEN [Concomitant]
  14. GABAPENTIN [Concomitant]
     Indication: PRODUCT USED FOR UNKNOWN INDICATION
     Dosage: 600MG-TID
  15. BETASERON [Suspect]
     Indication: RELAPSING-REMITTING MULTIPLE SCLEROSIS
     Dosage: UNK
     Dates: start: 20101228, end: 20110209
  16. VITAMIN B-12 [Concomitant]
     Indication: PRODUCT USED FOR UNKNOWN INDICATION
     Dosage: B-12  INJECTIONS X 3 DAYS

REACTIONS (18)
  - MULTIPLE SCLEROSIS RELAPSE [None]
  - ARTHRALGIA [None]
  - CHEST PAIN [None]
  - GASTROINTESTINAL PAIN [None]
  - INTESTINAL DILATATION [None]
  - LARGE INTESTINAL ULCER [None]
  - DYSPEPSIA [None]
  - HYPOAESTHESIA [None]
  - INJECTION SITE ERYTHEMA [None]
  - COORDINATION ABNORMAL [None]
  - MUSCULAR WEAKNESS [None]
  - PAIN IN EXTREMITY [None]
  - MENTAL STATUS CHANGES [None]
  - CONSTIPATION [None]
  - DIARRHOEA [None]
  - RESPIRATORY DISORDER [None]
  - MULTIPLE SCLEROSIS [None]
  - CONVULSION [None]
